FAERS Safety Report 21662946 (Version 3)
Quarter: 2023Q2

REPORT INFORMATION
  Report Type: Spontaneous
  Country: KR (occurrence: KR)
  Receive Date: 20221130
  Receipt Date: 20230627
  Transmission Date: 20230722
  Serious: Yes (Death)
  Sender: FDA-Public Use
  Company Number: KR-TEVA-2022-KR-2828993

PATIENT
  Age: 70 Year
  Sex: Female

DRUGS (16)
  1. RESLIZUMAB [Suspect]
     Active Substance: RESLIZUMAB
     Indication: T-cell lymphoma
     Route: 065
     Dates: start: 2021
  2. RESLIZUMAB [Suspect]
     Active Substance: RESLIZUMAB
     Indication: CD20 antigen positive
  3. OBINUTUZUMAB [Suspect]
     Active Substance: OBINUTUZUMAB
     Indication: T-cell lymphoma
     Route: 065
     Dates: start: 2021
  4. OBINUTUZUMAB [Suspect]
     Active Substance: OBINUTUZUMAB
     Indication: CD20 antigen positive
  5. IBRUTINIB [Suspect]
     Active Substance: IBRUTINIB
     Indication: T-cell lymphoma
     Route: 065
     Dates: start: 2021
  6. IBRUTINIB [Suspect]
     Active Substance: IBRUTINIB
     Indication: CD20 antigen positive
  7. VENETOCLAX [Suspect]
     Active Substance: VENETOCLAX
     Indication: T-cell lymphoma
     Route: 065
     Dates: start: 2021
  8. VENETOCLAX [Suspect]
     Active Substance: VENETOCLAX
     Indication: CD20 antigen positive
  9. VINCRISTINE [Suspect]
     Active Substance: VINCRISTINE
     Indication: T-cell lymphoma
     Route: 065
     Dates: start: 2021
  10. VINCRISTINE [Suspect]
     Active Substance: VINCRISTINE
     Indication: CD20 antigen positive
  11. CYCLOPHOSPHAMIDE [Suspect]
     Active Substance: CYCLOPHOSPHAMIDE
     Indication: T-cell lymphoma
     Route: 065
     Dates: start: 2021
  12. CYCLOPHOSPHAMIDE [Suspect]
     Active Substance: CYCLOPHOSPHAMIDE
     Indication: CD20 antigen positive
  13. CHLORAMBUCIL [Suspect]
     Active Substance: CHLORAMBUCIL
     Indication: T-cell lymphoma
     Route: 065
     Dates: start: 2021
  14. CHLORAMBUCIL [Suspect]
     Active Substance: CHLORAMBUCIL
     Indication: CD20 antigen positive
  15. PREDNISOLONE [Suspect]
     Active Substance: PREDNISOLONE
     Indication: T-cell lymphoma
     Route: 065
     Dates: start: 2021
  16. PREDNISOLONE [Suspect]
     Active Substance: PREDNISOLONE
     Indication: CD20 antigen positive

REACTIONS (1)
  - Drug ineffective [Fatal]

NARRATIVE: CASE EVENT DATE: 20210101
